FAERS Safety Report 21153625 (Version 1)
Quarter: 2022Q3

REPORT INFORMATION
  Report Type: Spontaneous
  Country: BR (occurrence: BR)
  Receive Date: 20220801
  Receipt Date: 20220801
  Transmission Date: 20221027
  Serious: Yes (Other)
  Sender: FDA-Public Use
  Company Number: BR-NOVARTISPH-NVSC2022BR171628

PATIENT
  Age: 74 Year
  Sex: Female

DRUGS (1)
  1. CYCLOSPORINE [Suspect]
     Active Substance: CYCLOSPORINE
     Indication: Autoimmune haemolytic anaemia
     Dosage: UNK
     Route: 065

REACTIONS (3)
  - Hepatic failure [Unknown]
  - Dyspnoea [Unknown]
  - Drug ineffective for unapproved indication [Unknown]
